FAERS Safety Report 9357664 (Version 1)
Quarter: 2013Q2

REPORT INFORMATION
  Report Type: Spontaneous
  Country: US (occurrence: None)
  Receive Date: 20130619
  Receipt Date: 20130619
  Transmission Date: 20140414
  Serious: Yes (Other)
  Sender: FDA-Public Use
  Company Number: None

PATIENT
  Age: 43 Year
  Sex: Female
  Weight: 55.34 kg

DRUGS (2)
  1. TB TEST-LEFT FOREARM [Suspect]
     Dates: start: 20130520, end: 20130520
  2. EMERGEN C (ONCE A DAY) [Concomitant]

REACTIONS (6)
  - Injection site erythema [None]
  - Pain in extremity [None]
  - Fatigue [None]
  - Pruritus [None]
  - Hypopnoea [None]
  - Hypersensitivity [None]
